FAERS Safety Report 12579684 (Version 1)
Quarter: 2016Q3

REPORT INFORMATION
  Report Type: Spontaneous
  Country: GB (occurrence: GB)
  Receive Date: 20160721
  Receipt Date: 20160721
  Transmission Date: 20161109
  Serious: Yes (Hospitalization)
  Sender: FDA-Public Use
  Company Number: GB-JNJFOC-20160714590

PATIENT
  Age: 75 Year
  Sex: Female
  Weight: 67.8 kg

DRUGS (11)
  1. HUMALOG MIX [Concomitant]
     Active Substance: INSULIN LISPRO
     Route: 065
  2. XARELTO [Suspect]
     Active Substance: RIVAROXABAN
     Indication: DEEP VEIN THROMBOSIS
     Route: 048
     Dates: start: 20160622, end: 20160627
  3. SODIUM ALGINATE [Concomitant]
     Active Substance: SODIUM ALGINATE
     Route: 065
  4. SERETIDE [Concomitant]
     Active Substance: FLUTICASONE PROPIONATE\SALMETEROL XINAFOATE
     Route: 065
  5. FYBOGEL [Concomitant]
     Active Substance: PLANTAGO OVATA SEED
     Route: 065
  6. PRIMIDONE. [Suspect]
     Active Substance: PRIMIDONE
     Indication: PRODUCT USED FOR UNKNOWN INDICATION
     Route: 048
  7. HYDROXYCHLOROQUINE [Concomitant]
     Active Substance: HYDROXYCHLOROQUINE
     Route: 065
  8. XARELTO [Suspect]
     Active Substance: RIVAROXABAN
     Indication: EMBOLISM VENOUS
     Route: 048
     Dates: start: 20160622, end: 20160627
  9. FOLIC ACID. [Concomitant]
     Active Substance: FOLIC ACID
     Route: 065
  10. METHOTREXATE. [Concomitant]
     Active Substance: METHOTREXATE
     Route: 065
  11. NAPROXEN. [Concomitant]
     Active Substance: NAPROXEN
     Route: 065

REACTIONS (2)
  - Pulmonary embolism [Recovering/Resolving]
  - Inhibitory drug interaction [Unknown]

NARRATIVE: CASE EVENT DATE: 20160627
